FAERS Safety Report 22152350 (Version 1)
Quarter: 2023Q1

REPORT INFORMATION
  Report Type: Spontaneous
  Country: US (occurrence: US)
  Receive Date: 20230329
  Receipt Date: 20230329
  Transmission Date: 20230418
  Serious: Yes (Other)
  Sender: FDA-Public Use
  Company Number: US-HORIZON THERAPEUTICS-HZN-2023-002282

PATIENT

DRUGS (2)
  1. PREDNISONE [Suspect]
     Active Substance: PREDNISONE
     Indication: Radiation pneumonitis
     Dosage: 40 MG, QD
     Route: 048
  2. NINTEDANIB [Suspect]
     Active Substance: NINTEDANIB
     Indication: Radiation pneumonitis
     Dosage: 150 MG, BID, 12 WEEKS, ORAL
     Route: 048

REACTIONS (7)
  - Pneumonia [Unknown]
  - Pleural effusion [Unknown]
  - Fatigue [Unknown]
  - Diarrhoea [Unknown]
  - Alanine aminotransferase increased [Unknown]
  - Dyspnoea [Unknown]
  - Off label use [Unknown]
